FAERS Safety Report 4965599-5 (Version None)
Quarter: 2006Q1

REPORT INFORMATION
  Report Type: 
  Country: None (occurrence: None)
  Receive Date: 20060201
  Receipt Date: 20051012
  Transmission Date: 20060701
  Serious: No
  Sender: FDA-Public Use
  Company Number: 2005PV003207

PATIENT
  Age: 54 Year
  Sex: Female
  Weight: 120.2032 kg

DRUGS (5)
  1. BYETTA [Suspect]
     Indication: DIABETES MELLITUS NON-INSULIN-DEPENDENT
     Dosage: 5 MCG;BID;SC
     Route: 058
     Dates: start: 20051006
  2. PREVACID [Concomitant]
  3. AVAPRO [Concomitant]
  4. ZIAC [Concomitant]
  5. EFFEXOR [Concomitant]

REACTIONS (4)
  - ERUCTATION [None]
  - GASTROOESOPHAGEAL REFLUX DISEASE [None]
  - NAUSEA [None]
  - WEIGHT DECREASED [None]
